FAERS Safety Report 18141076 (Version 11)
Quarter: 2023Q2

REPORT INFORMATION
  Report Type: Spontaneous
  Country: US (occurrence: US)
  Receive Date: 20200812
  Receipt Date: 20230629
  Transmission Date: 20230722
  Serious: Yes (Other)
  Sender: FDA-Public Use
  Company Number: US-PFIZER INC-2020309387

PATIENT
  Age: 44 Year
  Sex: Female

DRUGS (2)
  1. IBRANCE [Suspect]
     Active Substance: PALBOCICLIB
     Indication: Breast cancer
     Dosage: 125 MG, ONCE DAILY FOR 21DAYS AND 7 DAYS OFF
     Route: 048
     Dates: start: 20200220, end: 202101
  2. IBRANCE [Suspect]
     Active Substance: PALBOCICLIB
     Dosage: 100 MG, FOR 21 DAYS
     Route: 048
     Dates: start: 202212

REACTIONS (20)
  - COVID-19 [Recovered/Resolved]
  - Fatigue [Not Recovered/Not Resolved]
  - Nausea [Not Recovered/Not Resolved]
  - Amnesia [Not Recovered/Not Resolved]
  - Diarrhoea [Not Recovered/Not Resolved]
  - Influenza [Recovering/Resolving]
  - Malaise [Unknown]
  - Stomatitis [Unknown]
  - Cheilitis [Unknown]
  - Asthenia [Unknown]
  - Tremor [Unknown]
  - Vomiting [Not Recovered/Not Resolved]
  - Feeding disorder [Unknown]
  - Burn oesophageal [Unknown]
  - Gastrooesophageal reflux disease [Unknown]
  - Dyspepsia [Unknown]
  - Oesophageal pain [Unknown]
  - Sinusitis [Unknown]
  - Pharyngitis [Unknown]
  - Ear infection [Unknown]

NARRATIVE: CASE EVENT DATE: 20200101
